FAERS Safety Report 18627237 (Version 1)
Quarter: 2020Q4

REPORT INFORMATION
  Report Type: Other
  Country: KR (occurrence: KR)
  Receive Date: 20201217
  Receipt Date: 20201217
  Transmission Date: 20210114
  Serious: Yes (Other)
  Sender: FDA-Public Use
  Company Number: KR-ROCHE-2729662

PATIENT

DRUGS (2)
  1. ALTEPLASE. [Suspect]
     Active Substance: ALTEPLASE
     Indication: AGE-RELATED MACULAR DEGENERATION
     Route: 050
  2. PERFLUOROPROPANE [Suspect]
     Active Substance: PERFLUTREN
     Indication: AGE-RELATED MACULAR DEGENERATION
     Route: 065

REACTIONS (2)
  - Vitreous haemorrhage [Unknown]
  - Rhegmatogenous retinal detachment [Unknown]
